FAERS Safety Report 7793081-9 (Version None)
Quarter: 2011Q4

REPORT INFORMATION
  Report Type: 
  Country: None (occurrence: None)
  Receive Date: 20111003
  Receipt Date: 20110930
  Transmission Date: 20120403
  Serious: Yes (Hospitalization)
  Sender: FDA-Public Use
  Company Number: US-PFIZER INC-2011195426

PATIENT
  Sex: Female
  Weight: 69 kg

DRUGS (12)
  1. XANAX [Suspect]
     Dosage: 0.25 MG, 3X/DAY
     Route: 048
  2. NEXIUM [Concomitant]
     Dosage: 40 MG, DAILY
     Route: 048
  3. PREDNISONE [Concomitant]
     Dosage: 30 MG DAILY TAPERING DOSE BY 10 MG EVERY WEEK
     Route: 048
  4. ZYPREXA [Concomitant]
     Dosage: 2.5 MG, DAILY
     Route: 048
  5. LEXAPRO [Concomitant]
     Dosage: 20 MG, DAILY
     Route: 048
  6. ATIVAN [Suspect]
     Dosage: 1 MG, 3X/DAY, AS NEEDED
     Route: 048
  7. LOVENOX [Concomitant]
     Dosage: 150 MG, DAILY
     Route: 058
  8. DUONEB [Concomitant]
     Dosage: 3 ML, 4X/DAY
     Route: 055
  9. PF-02341066 [Suspect]
     Indication: LUNG ADENOCARCINOMA
     Dosage: 250 MG, 2X/DAY
     Route: 048
     Dates: start: 20110628, end: 20110901
  10. DIFLUCAN [Concomitant]
     Dosage: 200 MG, DAILY
     Route: 048
  11. LORTAB [Concomitant]
     Indication: PAIN
     Dosage: 7.5/325 MG, Q6HR, AS NEEDED
     Route: 048
  12. CARDIZEM [Concomitant]
     Dosage: 30 MG, 2X/DAY
     Route: 048
     Dates: end: 20110812

REACTIONS (1)
  - HYPERCAPNIA [None]
